FAERS Safety Report 11273562 (Version 6)
Quarter: 2015Q3

REPORT INFORMATION
  Report Type: Spontaneous
  Country: US (occurrence: US)
  Receive Date: 20150715
  Receipt Date: 20150910
  Transmission Date: 20151125
  Serious: Yes (Hospitalization, Other)
  Sender: FDA-Public Use
  Company Number: US-JNJFOC-20150710571

PATIENT
  Sex: Male

DRUGS (2)
  1. IMBRUVICA [Suspect]
     Active Substance: IBRUTINIB
     Indication: CHRONIC LYMPHOCYTIC LEUKAEMIA
     Route: 048
     Dates: start: 201504, end: 2015
  2. IMBRUVICA [Suspect]
     Active Substance: IBRUTINIB
     Indication: CHRONIC LYMPHOCYTIC LEUKAEMIA
     Route: 048
     Dates: start: 20150501, end: 2015

REACTIONS (6)
  - Post procedural haemorrhage [Not Recovered/Not Resolved]
  - Nephrolithiasis [Unknown]
  - Renal failure [Unknown]
  - Haematuria [Unknown]
  - Incorrect dose administered [Recovered/Resolved]
  - Hydronephrosis [Unknown]

NARRATIVE: CASE EVENT DATE: 2015
